FAERS Safety Report 8543132-9 (Version None)
Quarter: 2012Q3

REPORT INFORMATION
  Report Type: 
  Country: None (occurrence: None)
  Receive Date: 20120727
  Receipt Date: 20120306
  Transmission Date: 20120928
  Serious: No
  Sender: FDA-Public Use
  Company Number: US-MYLANLABS-2012S1004079

PATIENT
  Age: 63 Year
  Sex: Female

DRUGS (11)
  1. DIPHENHYDRAMINE HCL [Concomitant]
  2. LEVOTHYROXINE SODIUM [Suspect]
     Indication: HYPOTHYROIDISM
     Route: 048
     Dates: start: 20100101, end: 20120216
  3. STOOL SOFTENER [Concomitant]
  4. ALBUTEROL [Concomitant]
  5. CETIRIZINE HCL [Concomitant]
  6. VENTOLIN [Concomitant]
  7. QVAR 40 [Concomitant]
  8. MINERAL TAB [Concomitant]
  9. PAXIL [Concomitant]
     Indication: FIBROMYALGIA
  10. VITAMIN TAB [Concomitant]
  11. ACETAMINOPHEN [Concomitant]

REACTIONS (8)
  - DYSPEPSIA [None]
  - DIARRHOEA [None]
  - PAIN [None]
  - ABDOMINAL PAIN UPPER [None]
  - ERUCTATION [None]
  - REACTION TO DRUG EXCIPIENTS [None]
  - GASTROOESOPHAGEAL REFLUX DISEASE [None]
  - ABDOMINAL TENDERNESS [None]
